FAERS Safety Report 22389054 (Version 1)
Quarter: 2023Q2

REPORT INFORMATION
  Report Type: Spontaneous
  Country: US (occurrence: US)
  Receive Date: 20230531
  Receipt Date: 20230531
  Transmission Date: 20230721
  Serious: No
  Sender: FDA-Public Use
  Company Number: US-MYCOVIA PHARMACEUTICALS, INC.-MY-2023-000007

PATIENT
  Age: 71 Year
  Sex: Female

DRUGS (3)
  1. VIVJOA [Suspect]
     Active Substance: OTESECONAZOLE
     Indication: Vulvovaginal candidiasis
     Dosage: 4 CAPSULES, ONE TIME DOSE
     Route: 048
     Dates: start: 20230302, end: 20230303
  2. VIVJOA [Suspect]
     Active Substance: OTESECONAZOLE
     Dosage: 3 CAPSULES, ONE TIME DOSE
  3. VIVJOA [Suspect]
     Active Substance: OTESECONAZOLE
     Dosage: 1 CAPSULE, QD

REACTIONS (1)
  - Dysuria [Recovering/Resolving]

NARRATIVE: CASE EVENT DATE: 20230304
